FAERS Safety Report 19645465 (Version 1)
Quarter: 2021Q3

REPORT INFORMATION
  Report Type: Spontaneous
  Country: US (occurrence: US)
  Receive Date: 20210730
  Receipt Date: 20210730
  Transmission Date: 20211014
  Serious: Yes (Hospitalization)
  Sender: FDA-Public Use
  Company Number: None

PATIENT
  Sex: Male
  Weight: 78.47 kg

DRUGS (16)
  1. PREDNISONE. [Concomitant]
     Active Substance: PREDNISONE
  2. LOSARTAN. [Concomitant]
     Active Substance: LOSARTAN
  3. IRBESARTAN. [Concomitant]
     Active Substance: IRBESARTAN
  4. POTASSIUM GLUCONATE [Concomitant]
     Active Substance: POTASSIUM GLUCONATE
  5. AMLODIPINE [Concomitant]
     Active Substance: AMLODIPINE BESYLATE
  6. ABIRATERONE 250 MG TABLET [Suspect]
     Active Substance: ABIRATERONE
     Indication: PROSTATE CANCER
     Route: 048
  7. 00?0 10 [Concomitant]
  8. ASPIRIN. [Concomitant]
     Active Substance: ASPIRIN
  9. SIMVASTATIN. [Concomitant]
     Active Substance: SIMVASTATIN
  10. LUTEIN [Concomitant]
     Active Substance: LUTEIN
  11. TAMSULOSIN [Concomitant]
     Active Substance: TAMSULOSIN
  12. ADVIL [Concomitant]
     Active Substance: IBUPROFEN
  13. ASCORBIC ACID. [Concomitant]
     Active Substance: ASCORBIC ACID
  14. ZINC. [Concomitant]
     Active Substance: ZINC
  15. VITAMIN E [Concomitant]
     Active Substance: .ALPHA.-TOCOPHEROL
  16. H CTZ [Concomitant]

REACTIONS (1)
  - Hospitalisation [None]
